FAERS Safety Report 24286171 (Version 1)
Quarter: 2024Q3

REPORT INFORMATION
  Report Type: Spontaneous
  Country: BR (occurrence: BR)
  Receive Date: 20240905
  Receipt Date: 20240905
  Transmission Date: 20241016
  Serious: Yes (Hospitalization)
  Sender: NOVARTIS
  Company Number: BR-002147023-NVSC2024BR155833

PATIENT
  Age: 52 Year
  Sex: Female
  Weight: 72 kg

DRUGS (9)
  1. KISQALI [Suspect]
     Active Substance: RIBOCICLIB
     Indication: Breast cancer metastatic
     Dosage: 3 DOSAGE FORM, QD (EVERY 21 DAYS AND PAUSE FOR 7 DAYS), (63 COATED TABLETS)
     Route: 065
     Dates: start: 20240716
  2. KISQALI [Suspect]
     Active Substance: RIBOCICLIB
     Indication: Metastases to bone
  3. KISQALI [Suspect]
     Active Substance: RIBOCICLIB
     Indication: Metastases to lung
  4. KISQALI [Suspect]
     Active Substance: RIBOCICLIB
     Indication: Metastases to central nervous system
  5. LETROZOLE [Suspect]
     Active Substance: LETROZOLE
     Indication: Breast cancer metastatic
     Dosage: 1 DOSAGE FORM, QD (WITH 30 TABLETS EUR)
     Route: 065
     Dates: start: 20240716
  6. LETROZOLE [Suspect]
     Active Substance: LETROZOLE
     Indication: Metastases to bone
  7. LETROZOLE [Suspect]
     Active Substance: LETROZOLE
     Indication: Metastases to lung
  8. LETROZOLE [Suspect]
     Active Substance: LETROZOLE
     Indication: Metastases to central nervous system
  9. DEXAMETHASONE [Concomitant]
     Active Substance: DEXAMETHASONE
     Indication: Product used for unknown indication
     Dosage: 2 DOSAGE FORM, QD (WEANING)
     Route: 065

REACTIONS (7)
  - Malaise [Unknown]
  - Headache [Unknown]
  - Asthenia [Unknown]
  - Dysgeusia [Unknown]
  - Hot flush [Unknown]
  - Alopecia [Unknown]
  - Nodule [Unknown]

NARRATIVE: CASE EVENT DATE: 20240701
